FAERS Safety Report 25607191 (Version 1)
Quarter: 2025Q3

REPORT INFORMATION
  Report Type: Spontaneous
  Country: JP (occurrence: JP)
  Receive Date: 20250725
  Receipt Date: 20250725
  Transmission Date: 20251020
  Serious: Yes (Hospitalization, Other)
  Sender: MERCK SHARP & DOHME LLC
  Company Number: JP-009507513-2298555

PATIENT
  Age: 68 Year
  Sex: Female

DRUGS (13)
  1. KEYTRUDA [Suspect]
     Active Substance: PEMBROLIZUMAB
     Indication: Uterine cancer
     Route: 041
     Dates: start: 20231206, end: 20231206
  2. KEYTRUDA [Suspect]
     Active Substance: PEMBROLIZUMAB
     Indication: Uterine cancer
     Route: 041
     Dates: start: 20240104, end: 20240104
  3. KEYTRUDA [Suspect]
     Active Substance: PEMBROLIZUMAB
     Indication: Uterine cancer
     Route: 041
     Dates: start: 20240125, end: 20240125
  4. KEYTRUDA [Suspect]
     Active Substance: PEMBROLIZUMAB
     Indication: Uterine cancer
     Route: 041
     Dates: start: 20240215, end: 20240215
  5. KEYTRUDA [Suspect]
     Active Substance: PEMBROLIZUMAB
     Indication: Uterine cancer
     Route: 041
     Dates: start: 20240307, end: 20240307
  6. KEYTRUDA [Suspect]
     Active Substance: PEMBROLIZUMAB
     Indication: Uterine cancer
     Route: 041
     Dates: start: 20240502, end: 20240502
  7. KEYTRUDA [Suspect]
     Active Substance: PEMBROLIZUMAB
     Indication: Uterine cancer
     Route: 041
     Dates: start: 20240523, end: 20240523
  8. KEYTRUDA [Suspect]
     Active Substance: PEMBROLIZUMAB
     Indication: Uterine cancer
     Route: 041
     Dates: start: 20240613, end: 20240613
  9. LENVIMA [Suspect]
     Active Substance: LENVATINIB
     Indication: Uterine cancer
     Route: 048
     Dates: start: 20231206, end: 20240118
  10. LENVIMA [Suspect]
     Active Substance: LENVATINIB
     Indication: Uterine cancer
     Route: 048
     Dates: start: 20240125, end: 20240201
  11. LENVIMA [Suspect]
     Active Substance: LENVATINIB
     Indication: Uterine cancer
     Route: 048
     Dates: start: 20240215, end: 20240404
  12. LENVIMA [Suspect]
     Active Substance: LENVATINIB
     Indication: Uterine cancer
     Route: 048
     Dates: start: 20240502, end: 20240704
  13. BONVIVA [Concomitant]
     Active Substance: IBANDRONATE SODIUM

REACTIONS (13)
  - Immune-mediated hypothyroidism [Recovering/Resolving]
  - Immune-mediated adrenal insufficiency [Recovering/Resolving]
  - Malaise [Unknown]
  - Intestinal haemorrhage [Unknown]
  - Gastrointestinal disorder [Unknown]
  - Cough [Unknown]
  - Hepatic function abnormal [Unknown]
  - Bacteraemia [Unknown]
  - Tachycardia [Unknown]
  - Cystitis [Unknown]
  - Inappropriate schedule of product administration [Unknown]
  - Stomatitis [Unknown]
  - Pulmonary toxicity [Unknown]

NARRATIVE: CASE EVENT DATE: 20240104
